FAERS Safety Report 17212301 (Version 1)
Quarter: 2019Q4

REPORT INFORMATION
  Report Type: Spontaneous
  Country: US (occurrence: US)
  Receive Date: 20191230
  Receipt Date: 20191230
  Transmission Date: 20200122
  Serious: No
  Sender: FDA-Public Use
  Company Number: US-ORIENT PHARMA-000011

PATIENT
  Age: 57 Year
  Sex: Female
  Weight: 48.99 kg

DRUGS (4)
  1. KLONOPIN [Concomitant]
     Active Substance: CLONAZEPAM
  2. NORCO [Concomitant]
     Active Substance: ACETAMINOPHEN\HYDROCODONE BITARTRATE
  3. ALBUTEROL. [Concomitant]
     Active Substance: ALBUTEROL
  4. CARISOPRODOL. [Suspect]
     Active Substance: CARISOPRODOL
     Indication: PRODUCT USED FOR UNKNOWN INDICATION
     Dosage: STRENGTH: 350 MG
     Route: 048
     Dates: start: 20190228

REACTIONS (1)
  - Vomiting [Unknown]
